FAERS Safety Report 6194501-6 (Version None)
Quarter: 2009Q2

REPORT INFORMATION
  Report Type: 
  Country: None (occurrence: None)
  Receive Date: 20090519
  Receipt Date: 20090514
  Transmission Date: 20091009
  Serious: Yes (Hospitalization)
  Sender: FDA-Public Use
  Company Number: GB-TEVA-195010ISR

PATIENT
  Age: 97 Year
  Sex: Female
  Weight: 57.7 kg

DRUGS (1)
  1. CLARITHROMYCIN [Suspect]
     Indication: PNEUMONIA
     Route: 048
     Dates: start: 20090331, end: 20090403

REACTIONS (1)
  - HYPONATRAEMIA [None]
